FAERS Safety Report 5143549-9 (Version None)
Quarter: 2006Q4

REPORT INFORMATION
  Report Type: 
  Country: None (occurrence: None)
  Receive Date: 20061103
  Receipt Date: 20060731
  Transmission Date: 20070319
  Serious: Yes (Life-Threatening, Hospitalization)
  Sender: FDA-Public Use
  Company Number: JP-GILEAD-2006-0009943

PATIENT
  Sex: Male

DRUGS (9)
  1. VIREAD [Suspect]
     Indication: HIV INFECTION
     Route: 048
     Dates: start: 20050307
  2. EPIVIR [Suspect]
     Indication: HIV INFECTION
     Route: 048
     Dates: start: 20050307
  3. STOCRIN [Suspect]
     Indication: HIV INFECTION
     Route: 048
     Dates: start: 20050411
  4. VIDEX EC [Suspect]
     Indication: HIV INFECTION
     Route: 048
     Dates: start: 20010906, end: 20050201
  5. ZERIT [Suspect]
     Indication: HIV INFECTION
     Route: 048
     Dates: start: 20040705, end: 20050201
  6. ZERIT [Suspect]
     Route: 048
     Dates: start: 20010906, end: 20040704
  7. VIRACEPT [Suspect]
     Indication: HIV INFECTION
     Route: 048
     Dates: start: 20010906, end: 20041206
  8. MONILAC [Concomitant]
     Dates: start: 20040401, end: 20050424
  9. RECOMBINATE [Concomitant]
     Dates: start: 20040401

REACTIONS (8)
  - ABDOMINAL PAIN [None]
  - ACCIDENT [None]
  - BLOOD HIV RNA INCREASED [None]
  - CEREBELLAR HAEMORRHAGE [None]
  - FALL [None]
  - LUMBAR VERTEBRAL FRACTURE [None]
  - NAUSEA [None]
  - SPINAL COMPRESSION FRACTURE [None]
